FAERS Safety Report 21484564 (Version 2)
Quarter: 2022Q4

REPORT INFORMATION
  Report Type: Spontaneous
  Country: US (occurrence: None)
  Receive Date: 20221020
  Receipt Date: 20221223
  Transmission Date: 20230113
  Serious: No
  Sender: FDA-Public Use
  Company Number: 2022A331020

PATIENT
  Age: 985 Month
  Sex: Female
  Weight: 74.8 kg

DRUGS (1)
  1. BUDESONIDE\FORMOTEROL [Suspect]
     Active Substance: BUDESONIDE\FORMOTEROL
     Indication: Chronic obstructive pulmonary disease
     Dosage: 80MCG/4.5MCG, 2 PUFFS ONCE DAILY
     Route: 055
     Dates: start: 20220308

REACTIONS (4)
  - Dysphonia [Unknown]
  - Cough [Unknown]
  - Product use issue [Unknown]
  - Device malfunction [Unknown]

NARRATIVE: CASE EVENT DATE: 20220901
